FAERS Safety Report 17550918 (Version 4)
Quarter: 2024Q4

REPORT INFORMATION
  Report Type: Spontaneous
  Country: PL (occurrence: PL)
  Receive Date: 20200317
  Receipt Date: 20241220
  Transmission Date: 20250114
  Serious: Yes (Hospitalization, Other)
  Sender: MYLAN
  Company Number: PL-TEVA-2020-PL-1183438

PATIENT
  Age: 40 Year
  Sex: Female
  Weight: 64 kg

DRUGS (20)
  1. TACROLIMUS [Suspect]
     Active Substance: TACROLIMUS
     Indication: Immunosuppressant drug therapy
     Dosage: INITIALLY AT HIGHER DOSES, AND THEN TITRATED DOWNWARD.
     Route: 065
     Dates: start: 2003
  2. TACROLIMUS [Suspect]
     Active Substance: TACROLIMUS
     Indication: Renal transplant
     Dosage: 12 MILLIGRAM, QD (DOSE RECOMMENDED AT DISCHARGE FROM THE HOSPITAL: 2 X 6 MG), 6 MG, BID (10.6 NG/ML)
     Route: 065
  3. TACROLIMUS [Suspect]
     Active Substance: TACROLIMUS
     Dosage: 6 MILLIGRAM, QD (2 X 3 MG)
     Route: 065
  4. TACROLIMUS [Suspect]
     Active Substance: TACROLIMUS
     Dosage: 10 MILLIGRAM, QD (2 X 5 MG)
     Route: 065
  5. TACROLIMUS [Suspect]
     Active Substance: TACROLIMUS
     Dosage: 3 MILLIGRAM, BID, 6 MG, TWICE DAILY (CONCENTRATION OF 10.6 NG/ML)
     Route: 065
  6. TACROLIMUS [Suspect]
     Active Substance: TACROLIMUS
     Dosage: 12 MILLIGRAM, DRUG DOSE ON DISCHARGE: 2 X 6 MG
     Route: 065
  7. TACROLIMUS [Suspect]
     Active Substance: TACROLIMUS
     Dosage: 12 MILLIGRAM, QD, DOSE RECOMMENDED AT DISCHARGE FROM THE HOSPITAL
     Route: 065
  8. TACROLIMUS [Suspect]
     Active Substance: TACROLIMUS
     Dosage: 3 MILLIGRAM, BID, 3 MG, Q12H
     Route: 065
  9. MYCOPHENOLATE MOFETIL [Suspect]
     Active Substance: MYCOPHENOLATE MOFETIL
     Indication: Immunosuppressant drug therapy
     Dosage: INITIALLY AT HIGHER DOSES, AND THEN TITRATED DOWNWARD.
     Route: 065
     Dates: start: 2003
  10. MYCOPHENOLATE MOFETIL [Suspect]
     Active Substance: MYCOPHENOLATE MOFETIL
     Indication: Renal transplant
     Dosage: 500 MILLIGRAM, QD (2 X 250 MG)
     Route: 065
     Dates: start: 2003
  11. MYCOPHENOLATE MOFETIL [Suspect]
     Active Substance: MYCOPHENOLATE MOFETIL
     Dosage: 2000 MILLIGRAM, QD (2 X 1000 MG)
     Route: 065
     Dates: start: 2004
  12. MYCOPHENOLATE MOFETIL [Suspect]
     Active Substance: MYCOPHENOLATE MOFETIL
     Dosage: 1 GRAM, QD (DOSE RECOMMENDED AT DISCHARGE FROM THE HOSPITAL: 2 X 0.5 G)
     Route: 065
  13. PREDNISONE [Suspect]
     Active Substance: PREDNISONE
     Indication: Immunosuppressant drug therapy
     Dosage: 15 MILLIGRAM, QD (DRUG DOSES ON DISCHARGE)
     Route: 065
  14. PREDNISONE [Suspect]
     Active Substance: PREDNISONE
     Indication: Renal transplant
     Dosage: 10 MILLIGRAM
     Route: 065
  15. PREDNISONE [Suspect]
     Active Substance: PREDNISONE
     Dosage: 5 MILLIGRAM X 1
     Route: 065
  16. PREDNISONE [Suspect]
     Active Substance: PREDNISONE
     Dosage: DRUG DOSES ON DISCHARGE: 2 X 0.5 G
     Route: 065
  17. PREDNISONE [Suspect]
     Active Substance: PREDNISONE
     Dosage: INITIALLY AT HIGHER DOSES, AND THEN TITRATED DOWNWARD.
     Route: 065
     Dates: start: 2003
  18. PREDNISONE [Suspect]
     Active Substance: PREDNISONE
     Dosage: UNK
     Route: 065
  19. PREDNISONE [Suspect]
     Active Substance: PREDNISONE
     Dosage: DOSE RECOMMENDED AT DISCHARGE FROM THE HOSPITAL AND GRADUALLY REDUCING AFTER HOSPITALISATION
     Route: 065
  20. AMLODIPINE [Concomitant]
     Active Substance: AMLODIPINE BESYLATE
     Indication: Product used for unknown indication
     Dosage: 10 MILLIGRAM, QD
     Route: 065

REACTIONS (5)
  - New onset diabetes after transplantation [Recovered/Resolved]
  - Diabetes mellitus [Recovered/Resolved]
  - Micturition urgency [Unknown]
  - Thirst [Unknown]
  - Product use in unapproved indication [Unknown]

NARRATIVE: CASE EVENT DATE: 20030101
